FAERS Safety Report 7087442-3 (Version None)
Quarter: 2010Q4

REPORT INFORMATION
  Report Type: 
  Country: None (occurrence: None)
  Receive Date: 20101108
  Receipt Date: 20101028
  Transmission Date: 20110411
  Serious: No
  Sender: FDA-Public Use
  Company Number: US-BIOGENIDEC-2010BI034996

PATIENT
  Age: 57 Year
  Sex: Male

DRUGS (1)
  1. TYSABRI [Suspect]
     Indication: MULTIPLE SCLEROSIS
     Route: 042
     Dates: start: 20100929, end: 20100929

REACTIONS (5)
  - BLOOD PRESSURE INCREASED [None]
  - FLUSHING [None]
  - RASH GENERALISED [None]
  - RASH PRURITIC [None]
  - URTICARIA [None]
